FAERS Safety Report 4625105-1 (Version None)
Quarter: 2005Q1

REPORT INFORMATION
  Report Type: 
  Country: None (occurrence: None)
  Receive Date: 20050325
  Receipt Date: 20041129
  Transmission Date: 20050727
  Serious: No
  Sender: FDA-Public Use
  Company Number: US_0412108830

PATIENT
  Age: 81 Year
  Sex: Female
  Weight: 57 kg

DRUGS (4)
  1. FORTEO [Suspect]
     Dates: start: 20041001
  2. ESTROGEN NOS [Concomitant]
  3. CALCIUM GLUCONATE [Concomitant]
  4. FOSAMAX [Concomitant]

REACTIONS (2)
  - BODY HEIGHT DECREASED [None]
  - BONE DENSITY DECREASED [None]
